FAERS Safety Report 4662298-4 (Version None)
Quarter: 2005Q2

REPORT INFORMATION
  Report Type: 
  Country: None (occurrence: None)
  Receive Date: 20050512
  Receipt Date: 20050425
  Transmission Date: 20051028
  Serious: Yes (Hospitalization)
  Sender: FDA-Public Use
  Company Number: US_0504116155

PATIENT
  Age: 1 Day
  Sex: Male
  Weight: 3 kg

DRUGS (3)
  1. REGULAR ILETIN II [Suspect]
     Dates: start: 19670101, end: 19680101
  2. NPH ILETIN I (BEEF-PORK) [Suspect]
     Dates: start: 19670101, end: 19680101
  3. MULTI-VITAMINS [Concomitant]

REACTIONS (4)
  - CAESAREAN SECTION [None]
  - DRUG EXPOSURE DURING PREGNANCY [None]
  - DRUG EXPOSURE VIA BREAST MILK [None]
  - FOETAL DISTRESS SYNDROME [None]
